FAERS Safety Report 16753840 (Version 1)
Quarter: 2019Q4

REPORT INFORMATION
  Report Type: Spontaneous
  Country: US (occurrence: US)
  Receive Date: 20190828
  Receipt Date: 20190828
  Transmission Date: 20200122
  Serious: Yes (Other)
  Sender: FDA-Public Use
  Company Number: None

PATIENT
  Age: 31 Year
  Sex: Female

DRUGS (2)
  1. BUPRENORPHINE/NALAXONE TABLETS [Suspect]
     Active Substance: BUPRENORPHINE HYDROCHLORIDE\NALOXONE HYDROCHLORIDE
     Indication: DRUG DEPENDENCE
     Route: 048
     Dates: start: 20190826, end: 20190828
  2. BUPRENORPHINE NALOXONE S-NG TABLETS [Suspect]
     Active Substance: BUPRENORPHINE\NALOXONE
     Dates: start: 20190826, end: 20190828

REACTIONS (2)
  - Drug ineffective [None]
  - Product solubility abnormal [None]

NARRATIVE: CASE EVENT DATE: 20190827
